FAERS Safety Report 7242128-7 (Version None)
Quarter: 2011Q1

REPORT INFORMATION
  Report Type: 
  Country: None (occurrence: None)
  Receive Date: 20110118
  Receipt Date: 20110110
  Transmission Date: 20110831
  Serious: Yes (Death, Hospitalization)
  Sender: FDA-Public Use
  Company Number: 2011AC000001

PATIENT
  Sex: Female

DRUGS (1)
  1. DIGOXIN [Suspect]
     Dates: start: 20060301, end: 20080101

REACTIONS (3)
  - ANXIETY [None]
  - PAIN [None]
  - EMOTIONAL DISTRESS [None]
